FAERS Safety Report 11467798 (Version 3)
Quarter: 2015Q4

REPORT INFORMATION
  Report Type: Spontaneous
  Country: JP (occurrence: JP)
  Receive Date: 20150908
  Receipt Date: 20151009
  Transmission Date: 20160304
  Serious: Yes (Life-Threatening, Hospitalization)
  Sender: FDA-Public Use
  Company Number: JP-ROCHE-1631110

PATIENT
  Age: 90 Year
  Sex: Female
  Weight: 37 kg

DRUGS (5)
  1. BONVIVA [Suspect]
     Active Substance: IBANDRONATE SODIUM
     Indication: OSTEOPOROSIS
     Route: 042
     Dates: start: 20150713
  2. HOCHUEKKITO [Concomitant]
     Active Substance: HERBALS
     Indication: DECREASED APPETITE
     Route: 048
  3. DOGMATYL [Concomitant]
     Active Substance: SULPIRIDE
     Indication: DEPRESSION
     Route: 048
  4. ATELEC [Concomitant]
     Active Substance: CILNIDIPINE
     Indication: HYPERTENSION
     Route: 048
  5. CELOOP [Concomitant]
     Indication: CHRONIC GASTRITIS
     Route: 048

REACTIONS (10)
  - Coma [Recovered/Resolved]
  - Vomiting [Recovered/Resolved]
  - Oedema peripheral [Recovered/Resolved]
  - Hyperthermia [Recovered/Resolved]
  - Cardiac failure [Recovered/Resolved]
  - Seizure [Recovered/Resolved]
  - Respiratory arrest [Unknown]
  - Nausea [Recovered/Resolved]
  - Hypotension [Recovered/Resolved]
  - Malaise [Unknown]

NARRATIVE: CASE EVENT DATE: 20150716
